APPROVED DRUG PRODUCT: BUPROPION HYDROCHLORIDE
Active Ingredient: BUPROPION HYDROCHLORIDE
Strength: 150MG
Dosage Form/Route: TABLET, EXTENDED RELEASE;ORAL
Application: A218385 | Product #002 | TE Code: AB1
Applicant: GRANULES PHARMACEUTICALS INC
Approved: Oct 17, 2024 | RLD: No | RS: No | Type: RX